FAERS Safety Report 17013128 (Version 1)
Quarter: 2019Q4

REPORT INFORMATION
  Report Type: Spontaneous
  Country: US (occurrence: US)
  Receive Date: 20191001
  Receipt Date: 20191001
  Transmission Date: 20200122
  Serious: No
  Sender: FDA-Public Use
  Company Number: None

PATIENT

DRUGS (2)
  1. ASTRINGYN  FERRIC SUBSULFATE AQUEOUS [Suspect]
     Active Substance: FERRIC SUBSULFATE
  2. LUGOLS SOLUTION [Suspect]
     Active Substance: IODINE

REACTIONS (3)
  - Product appearance confusion [None]
  - Wrong product stored [None]
  - Intercepted product dispensing error [None]
